FAERS Safety Report 9210890 (Version 3)
Quarter: 2013Q4

REPORT INFORMATION
  Report Type: Spontaneous
  Country: US (occurrence: US)
  Receive Date: 20130404
  Receipt Date: 20131226
  Transmission Date: 20140711
  Serious: Yes (Hospitalization, Other)
  Sender: FDA-Public Use
  Company Number: US-BAYER-2013-040364

PATIENT
  Age: 18 Year
  Sex: Female
  Weight: 44.44 kg

DRUGS (9)
  1. YAZ [Suspect]
     Dosage: UNK
     Dates: start: 2007, end: 2009
  2. YASMIN [Suspect]
     Dosage: UNK
     Dates: start: 2007, end: 2009
  3. OCELLA [Suspect]
     Dosage: UNK
     Dates: start: 2007, end: 2009
  4. AMOXICILLIN [Concomitant]
  5. MAXALT [Concomitant]
     Dosage: UNK
     Dates: start: 2010, end: 2013
  6. OMEPRAZOLE [Concomitant]
     Dosage: 20 MG, EVERY MORNING
     Route: 048
  7. ONDANSETRON [Concomitant]
     Indication: NAUSEA
     Dosage: 8 MG, TID
     Route: 048
  8. ONDANSETRON [Concomitant]
     Indication: VOMITING
  9. TRAMADOL [Concomitant]
     Indication: PAIN
     Dosage: 50 MG, QID
     Route: 048

REACTIONS (13)
  - Gallbladder disorder [None]
  - Nephropathy [None]
  - Cholecystitis chronic [None]
  - Weight decreased [None]
  - Abdominal adhesions [None]
  - Haematotoxicity [None]
  - Injury [None]
  - Pain [None]
  - Emotional distress [None]
  - Anxiety [None]
  - Psychological trauma [None]
  - Anhedonia [None]
  - Fear of disease [None]
